FAERS Safety Report 24427228 (Version 1)
Quarter: 2024Q4

REPORT INFORMATION
  Report Type: Spontaneous
  Country: NL (occurrence: NL)
  Receive Date: 20241011
  Receipt Date: 20241011
  Transmission Date: 20250114
  Serious: Yes (Life-Threatening, Hospitalization, Other)
  Sender: BAXTER
  Company Number: None

PATIENT
  Age: 55 Year
  Sex: Male
  Weight: 115 kg

DRUGS (8)
  1. PROPOFOL [Suspect]
     Active Substance: PROPOFOL
     Indication: General anaesthesia
     Dosage: DOSAGE TEXT:  EMULSION FOR INJECTION, 20 MG/ML (MILLIGRAM PER MILLILITER), PROPOFOL EMULSION FOR INJ
     Route: 065
  2. CEFAZOLIN [Suspect]
     Active Substance: CEFAZOLIN
     Indication: Antibiotic prophylaxis
     Dosage: CEFAZOLIN POWDER FOR SOL. FOR INJECTION/ KEFZOL INJECTION POWDER 1000 MG VIAL1000 MG, DOSE: ONE-OFF
     Route: 065
  3. DEXAMETHASONE [Concomitant]
     Active Substance: DEXAMETHASONE
     Dosage: DOSAGE TEXT: DEXAMETHASONE TABLET 4MG / BRAND NAME NOT SPECIFIED
     Route: 065
  4. ALBUTEROL [Concomitant]
     Active Substance: ALBUTEROL
     Dosage: DOSAGE TEXT: AEROSOL, 100 UG/DOSE (MICROGRAMS PER DOSE), BRAND NAME NOT SPECIFIED
     Route: 065
  5. FENTANYL [Concomitant]
     Active Substance: FENTANYL
     Dosage: DOSAGE TEXT: SOLUTION FOR INJECTION, 0.05MG/ML [MILLIGRAM PER MILLILITER], BRAND NAME NOT SPECIFIED
     Route: 065
  6. ONDANSETRON [Concomitant]
     Active Substance: ONDANSETRON
     Dosage: DOSAGE TEXT: TABLET 4MG [MILLIGRAM] / BRAND NAME NOT SPECIFIED
     Route: 065
  7. BECLOMETHASONE\FORMOTEROL [Concomitant]
     Active Substance: BECLOMETHASONE\FORMOTEROL
     Dosage: DOSAGE TEXT: INHALATION POWDER, 100/6 UG/DOSE [MICROGRAM PER DOSE], BRAND NAME NOT SPECIFIED
     Route: 065
  8. METRONIDAZOLE [Concomitant]
     Active Substance: METRONIDAZOLE
     Dosage: DOSAGE TEXT: SOLUTION FOR INFUSION, 5 MG/ML [MILLIGRAM PER MILLILITER], BRAND NAME NOT SPECIFIED
     Route: 065

REACTIONS (2)
  - Hepatic failure [Not Recovered/Not Resolved]
  - Drug-induced liver injury [Not Recovered/Not Resolved]
